FAERS Safety Report 19706389 (Version 1)
Quarter: 2021Q3

REPORT INFORMATION
  Report Type: Spontaneous
  Country: FR (occurrence: FR)
  Receive Date: 20210817
  Receipt Date: 20210817
  Transmission Date: 20211014
  Serious: Yes (Other)
  Sender: FDA-Public Use
  Company Number: FR-TEVA-2021-FR-1942207

PATIENT
  Age: 66 Year
  Sex: Male

DRUGS (4)
  1. BISOPROLOL (FUMARATE ACIDE DE) [Suspect]
     Active Substance: BISOPROLOL FUMARATE
     Indication: ANGIOCARDIOGRAM
     Dosage: 2.5MILLIGRAM
     Route: 048
     Dates: start: 20210625, end: 20210629
  2. RAMIPRIL. [Suspect]
     Active Substance: RAMIPRIL
     Indication: ANGIOCARDIOGRAM
     Dosage: 1.25MILLIGRAM
     Route: 048
     Dates: start: 20210625, end: 20210629
  3. VISIPAQUE [Suspect]
     Active Substance: IODIXANOL
     Indication: ANGIOCARDIOGRAM
     Dosage: 60ML
     Route: 042
     Dates: start: 20210625, end: 20210625
  4. ATARAX [Suspect]
     Active Substance: HYDROXYZINE HYDROCHLORIDE
     Indication: PRODUCT USED FOR UNKNOWN INDICATION
     Dosage: 2DOSAGEFORM
     Route: 048
     Dates: start: 20210623, end: 20210623

REACTIONS (1)
  - Acute generalised exanthematous pustulosis [Recovered/Resolved]

NARRATIVE: CASE EVENT DATE: 20210630
